FAERS Safety Report 7378979-8 (Version None)
Quarter: 2011Q1

REPORT INFORMATION
  Report Type: 
  Country: None (occurrence: None)
  Receive Date: 20110328
  Receipt Date: 20110315
  Transmission Date: 20110831
  Serious: Yes (Other)
  Sender: FDA-Public Use
  Company Number: US-ELI_LILLY_AND_COMPANY-US201004004121

PATIENT
  Sex: Female

DRUGS (3)
  1. FORTEO [Suspect]
     Dosage: 20 UG, UNKNOWN
     Route: 065
  2. FORTEO [Suspect]
     Dosage: 20 UG, DAILY (1/D)
     Route: 065
  3. FORTEO [Suspect]
     Indication: OSTEOPOROSIS
     Dosage: 20 UG, UNKNOWN
     Route: 065
     Dates: start: 20100318

REACTIONS (9)
  - DIZZINESS [None]
  - MUSCULAR WEAKNESS [None]
  - MYALGIA [None]
  - SYNCOPE [None]
  - ARTHRALGIA [None]
  - HEAD INJURY [None]
  - MOVEMENT DISORDER [None]
  - BACK PAIN [None]
  - BLOOD PRESSURE DECREASED [None]
